FAERS Safety Report 8747840 (Version 2)
Quarter: 2013Q4

REPORT INFORMATION
  Report Type: Spontaneous
  Country: SE (occurrence: SE)
  Receive Date: 20120827
  Receipt Date: 20131031
  Transmission Date: 20140711
  Serious: Yes (Hospitalization)
  Sender: FDA-Public Use
  Company Number: SE-009507513-1208SWE007144

PATIENT
  Age: 44 Year
  Sex: Male

DRUGS (6)
  1. FOSAMAX [Suspect]
     Indication: OSTEOPOROSIS
     Dosage: 70 MG, QW
     Route: 048
     Dates: end: 20120604
  2. WARAN [Concomitant]
  3. BRICANYL TURBUHALER [Concomitant]
     Route: 055
  4. CALCICHEW D3 [Concomitant]
  5. OMEPRAZOLE [Concomitant]
  6. ARTELAC [Concomitant]

REACTIONS (1)
  - Anaphylactic reaction [Recovered/Resolved]
